FAERS Safety Report 25866647 (Version 1)
Quarter: 2025Q3

REPORT INFORMATION
  Report Type: Report from Study
  Country: US (occurrence: US)
  Receive Date: 20250930
  Receipt Date: 20250930
  Transmission Date: 20251020
  Serious: Yes (Hospitalization)
  Sender: ABBVIE
  Company Number: US-ABBVIE-6479342

PATIENT
  Age: 66 Year
  Sex: Female

DRUGS (1)
  1. SKYRIZI [Suspect]
     Active Substance: RISANKIZUMAB-RZAA
     Indication: Psoriasis
     Route: 058
     Dates: start: 20250310

REACTIONS (8)
  - Malaise [Unknown]
  - Hypophagia [Unknown]
  - Dehydration [Not Recovered/Not Resolved]
  - Fistula [Recovered/Resolved]
  - Obstruction [Unknown]
  - Crohn^s disease [Not Recovered/Not Resolved]
  - Parenteral nutrition [Unknown]
  - Contrast media allergy [Unknown]

NARRATIVE: CASE EVENT DATE: 20250101
